FAERS Safety Report 6611014-5 (Version None)
Quarter: 2010Q1

REPORT INFORMATION
  Report Type: 
  Country: None (occurrence: None)
  Receive Date: 20100222
  Receipt Date: 20100209
  Transmission Date: 20100710
  Serious: Yes (Hospitalization)
  Sender: FDA-Public Use
  Company Number: DSJ-2010-01942

PATIENT
  Age: 72 Year
  Sex: Female
  Weight: 40 kg

DRUGS (6)
  1. OLMETEC (OLMESARTAN MEDOXOMIL) (TABLET) (OLMESARTAN MEDOXOMIL) [Suspect]
     Indication: HYPERTENSION
     Dosage: 20 MG (20 MG,1 IN 1 D),OTHER 10 MG (10 MG,1 IN 1 D), OTHER
     Route: 050
     Dates: start: 20091227, end: 20100108
  2. OLMETEC (OLMESARTAN MEDOXOMIL) (TABLET) (OLMESARTAN MEDOXOMIL) [Suspect]
     Indication: HYPERTENSION
     Dosage: 20 MG (20 MG,1 IN 1 D),OTHER 10 MG (10 MG,1 IN 1 D), OTHER
     Route: 050
     Dates: start: 20100118, end: 20100203
  3. FUROSEMIDE (FUROSEMIDE) (TABLET) (FUROSEMIDE) [Suspect]
     Indication: HYPERTENSION
     Dosage: 20 MG (20 MG,1 IN 1 D),OTHER
     Route: 050
     Dates: start: 20091205, end: 20100203
  4. LACB R(ANTIBIOTICS-RESISTANT LACTIC ACID BACTERIAE) (ANTIBIOTICS-RESIS [Concomitant]
  5. AZULENE/GLUTAMINE [INGREDIENT UNKOWN] (GRANULES) [Concomitant]
  6. VITAMEDIN (PYRIDOXINE HYDROCHLORIDE, CYANOCOBALAMIN, BENFOTIAMINE) (CA [Concomitant]

REACTIONS (12)
  - ALTERED STATE OF CONSCIOUSNESS [None]
  - AUTONOMIC NERVOUS SYSTEM IMBALANCE [None]
  - BLOOD PRESSURE FLUCTUATION [None]
  - BLOOD UREA INCREASED [None]
  - HAEMOGLOBIN DECREASED [None]
  - HYPOTENSION [None]
  - OLIGURIA [None]
  - OXYGEN SATURATION DECREASED [None]
  - PRESYNCOPE [None]
  - RED BLOOD CELL COUNT DECREASED [None]
  - SHOCK [None]
  - SOMNOLENCE [None]
